FAERS Safety Report 23884725 (Version 3)
Quarter: 2024Q2

REPORT INFORMATION
  Report Type: Spontaneous
  Country: AU (occurrence: AU)
  Receive Date: 20240522
  Receipt Date: 20240624
  Transmission Date: 20240717
  Serious: Yes (Hospitalization)
  Sender: FDA-Public Use
  Company Number: AU-ELI_LILLY_AND_COMPANY-AU202405007231

PATIENT
  Age: 49 Year
  Sex: Female
  Weight: 76.2 kg

DRUGS (2)
  1. MOUNJARO [Suspect]
     Active Substance: TIRZEPATIDE
     Indication: Type 2 diabetes mellitus
     Dosage: 2.5 MG, WEEKLY (1/W)
     Route: 058
     Dates: start: 20240502, end: 20240502
  2. MOUNJARO [Suspect]
     Active Substance: TIRZEPATIDE
     Indication: Weight control

REACTIONS (5)
  - Hypertension [Recovered/Resolved]
  - Sinus tachycardia [Recovered/Resolved]
  - Nausea [Unknown]
  - Anaphylactic reaction [Unknown]
  - Dizziness [Unknown]

NARRATIVE: CASE EVENT DATE: 20240502
